FAERS Safety Report 14067721 (Version 2)
Quarter: 2017Q4

REPORT INFORMATION
  Report Type: Spontaneous
  Country: FR (occurrence: FR)
  Receive Date: 20171010
  Receipt Date: 20171027
  Transmission Date: 20180321
  Serious: Yes (Death)
  Sender: FDA-Public Use
  Company Number: FR-ROCHE-2003336

PATIENT
  Age: 75 Year
  Sex: Female

DRUGS (8)
  1. CORTANCYL [Suspect]
     Active Substance: PREDNISONE
     Indication: PRODUCT USED FOR UNKNOWN INDICATION
     Dosage: LONG TERM
     Route: 048
     Dates: end: 20170903
  2. AUGMENTIN [Suspect]
     Active Substance: AMOXICILLIN\CLAVULANATE POTASSIUM
     Indication: PRODUCT USED FOR UNKNOWN INDICATION
     Route: 048
     Dates: start: 20170902, end: 20170903
  3. ALDACTONE [Concomitant]
     Active Substance: SPIRONOLACTONE
     Indication: PRODUCT USED FOR UNKNOWN INDICATION
     Dosage: LONG TERM
     Route: 048
  4. LEVOTHYROX [Concomitant]
     Active Substance: LEVOTHYROXINE
     Route: 048
  5. CELLCEPT [Suspect]
     Active Substance: MYCOPHENOLATE MOFETIL\MYCOPHENOLATE MOFETIL HYDROCHLORIDE
     Indication: PRODUCT USED FOR UNKNOWN INDICATION
     Dosage: LONG TERM
     Route: 048
     Dates: end: 20170903
  6. URSOLVAN [Concomitant]
     Active Substance: URSODIOL
     Dosage: LONG TERM
     Route: 048
  7. NOVOMIX [Concomitant]
     Active Substance: INSULIN ASPART
     Dosage: LONG TERM
     Route: 058
  8. ISOPHANE INSULIN [Concomitant]
     Active Substance: INSULIN NOS
     Dosage: LONG TERM
     Route: 058

REACTIONS (1)
  - Necrotising fasciitis [Fatal]

NARRATIVE: CASE EVENT DATE: 20170903
